FAERS Safety Report 15835272 (Version 1)
Quarter: 2019Q1

REPORT INFORMATION
  Report Type: Spontaneous
  Country: GB (occurrence: GB)
  Receive Date: 20190116
  Receipt Date: 20190116
  Transmission Date: 20190417
  Serious: Yes (Other)
  Sender: FDA-Public Use
  Company Number: GB-BAXTER-2019BAX000724

PATIENT
  Sex: Female

DRUGS (6)
  1. SODIUM CHLORIDE 0.9% INTRAVENOUS INFUSION BP [Suspect]
     Active Substance: SODIUM CHLORIDE
     Dosage: CYCLE 3, SLOWER INFUSION
     Route: 065
     Dates: start: 20190102, end: 20190102
  2. IRINOTECAN [Suspect]
     Active Substance: IRINOTECAN
     Indication: PRODUCT USED FOR UNKNOWN INDICATION
     Dosage: CYCLE 1
     Route: 065
     Dates: start: 20181127, end: 20181127
  3. IRINOTECAN [Suspect]
     Active Substance: IRINOTECAN
     Indication: PRODUCT USED FOR UNKNOWN INDICATION
     Dosage: CYCLE 2, SLOWER INFUSION
     Route: 065
     Dates: start: 20181211, end: 20181211
  4. SODIUM CHLORIDE 0.9% INTRAVENOUS INFUSION BP [Suspect]
     Active Substance: SODIUM CHLORIDE
     Indication: MEDICATION DILUTION
     Dosage: CYCLE 1
     Route: 065
     Dates: start: 20181127, end: 20181127
  5. SODIUM CHLORIDE 0.9% INTRAVENOUS INFUSION BP [Suspect]
     Active Substance: SODIUM CHLORIDE
     Dosage: CYCLE 2, SLOWER INFUSION
     Route: 065
     Dates: start: 20181211, end: 20181211
  6. IRINOTECAN [Suspect]
     Active Substance: IRINOTECAN
     Dosage: CYCLE 3, SLOWER INFUSION
     Route: 065
     Dates: start: 20190102, end: 20190102

REACTIONS (2)
  - Blood pressure increased [Unknown]
  - Anaphylactoid reaction [Unknown]

NARRATIVE: CASE EVENT DATE: 20181127
